FAERS Safety Report 5460414-8 (Version None)
Quarter: 2007Q3

REPORT INFORMATION
  Report Type: 
  Country: None (occurrence: None)
  Receive Date: 20070919
  Receipt Date: 20070913
  Transmission Date: 20080115
  Serious: Yes (Other)
  Sender: FDA-Public Use
  Company Number: US-ASTRAZENECA-2007UW21903

PATIENT
  Age: 50 Year
  Sex: Male
  Weight: 77.3 kg

DRUGS (1)
  1. PRILOSEC OTC [Suspect]
     Indication: DYSPEPSIA
     Dosage: ONE TABLET
     Route: 048
     Dates: start: 20070830, end: 20070901

REACTIONS (3)
  - ATRIOVENTRICULAR BLOCK [None]
  - CHEST PAIN [None]
  - FAECES DISCOLOURED [None]
